FAERS Safety Report 15297273 (Version 1)
Quarter: 2018Q3

REPORT INFORMATION
  Report Type: Spontaneous
  Country: JP (occurrence: JP)
  Receive Date: 20180820
  Receipt Date: 20180820
  Transmission Date: 20181010
  Serious: Yes (Death)
  Sender: FDA-Public Use
  Company Number: JP-HQ SPECIALTY-JP-2018INT000139

PATIENT
  Sex: Male

DRUGS (13)
  1. CISPLATIN. [Suspect]
     Active Substance: CISPLATIN
     Dosage: UNK  (4 COURSES)
  2. PACLITAXEL. [Suspect]
     Active Substance: PACLITAXEL
     Indication: TESTICULAR GERM CELL CANCER METASTATIC
     Dosage: UNK (7 COURSES)
  3. BLEOMYCIN [Concomitant]
     Active Substance: BLEOMYCIN SULFATE
     Indication: TESTICULAR GERM CELL CANCER METASTATIC
     Dosage: UNK (3 COURSES)
  4. CISPLATIN. [Suspect]
     Active Substance: CISPLATIN
     Dosage: UNK (5 COURSES)
  5. PACLITAXEL. [Suspect]
     Active Substance: PACLITAXEL
     Dosage: UNK (5 COURSES)
  6. IFOSFAMIDE. [Suspect]
     Active Substance: IFOSFAMIDE
     Indication: TESTICULAR GERM CELL CANCER METASTATIC
     Dosage: UNK (7 COURSES)
  7. ETOPOSIDE. [Suspect]
     Active Substance: ETOPOSIDE
     Dosage: UNK  (4 COURSES)
  8. CISPLATIN. [Suspect]
     Active Substance: CISPLATIN
     Indication: TESTICULAR GERM CELL CANCER METASTATIC
     Dosage: UNK  (3 COURSES)
  9. CISPLATIN. [Suspect]
     Active Substance: CISPLATIN
     Dosage: UNK  (7 COURSES)
  10. NEDAPLATIN [Concomitant]
     Active Substance: NEDAPLATIN
     Indication: TESTICULAR GERM CELL CANCER METASTATIC
     Dosage: UNK (5 COURSES)
  11. ETOPOSIDE. [Suspect]
     Active Substance: ETOPOSIDE
     Indication: TESTICULAR GERM CELL CANCER METASTATIC
     Dosage: UNK  (3 COURSES)
  12. IRINOTECAN [Concomitant]
     Active Substance: IRINOTECAN
     Indication: TESTICULAR GERM CELL CANCER METASTATIC
     Dosage: UNK (5 COURSES)
  13. GEMCITABINE [Concomitant]
     Active Substance: GEMCITABINE\GEMCITABINE HYDROCHLORIDE
     Indication: TESTICULAR GERM CELL CANCER METASTATIC
     Dosage: UNK (5 COURSES)

REACTIONS (1)
  - Myelodysplastic syndrome [Fatal]
